FAERS Safety Report 4480141-3 (Version None)
Quarter: 2004Q3

REPORT INFORMATION
  Report Type: 
  Country: None (occurrence: None)
  Receive Date: 20040923
  Receipt Date: 20040607
  Transmission Date: 20050211
  Serious: No
  Sender: FDA-Public Use
  Company Number: USA040669415

PATIENT
  Age: 94 Year
  Sex: Female
  Weight: 58 kg

DRUGS (2)
  1. FORTEO [Suspect]
     Indication: SPINAL FRACTURE
     Dosage: 20 UG/ 1 DAY
     Dates: start: 20040301
  2. CALTRATE PLUS [Concomitant]

REACTIONS (2)
  - INJECTION SITE HAEMORRHAGE [None]
  - SCRATCH [None]
